FAERS Safety Report 9127759 (Version 1)
Quarter: 2013Q1

REPORT INFORMATION
  Report Type: Spontaneous
  Country: US (occurrence: US)
  Receive Date: 20130228
  Receipt Date: 20130228
  Transmission Date: 20140127
  Serious: Yes (Hospitalization)
  Sender: FDA-Public Use
  Company Number: US-ASTELLAS-2013US001909

PATIENT
  Age: 62 Year
  Sex: Female

DRUGS (1)
  1. PROGRAF [Suspect]
     Indication: ORGAN TRANSPLANT
     Dosage: 3 MG, BID
     Route: 048
     Dates: start: 20120724

REACTIONS (1)
  - Hospitalisation [Unknown]
